FAERS Safety Report 12149706 (Version 1)
Quarter: 2016Q1

REPORT INFORMATION
  Report Type: Spontaneous
  Country: GB (occurrence: GB)
  Receive Date: 20160304
  Receipt Date: 20160304
  Transmission Date: 20160526
  Serious: Yes (Death, Hospitalization, Other)
  Sender: FDA-Public Use
  Company Number: GB-SA-2016SA042148

PATIENT
  Age: 84 Year
  Sex: Female
  Weight: 98 kg

DRUGS (5)
  1. CLOPIDOGREL BISULFATE. [Suspect]
     Active Substance: CLOPIDOGREL BISULFATE
     Dosage: 75 MG, UNK
     Route: 065
  2. ELIQUIS [Suspect]
     Active Substance: APIXABAN
     Indication: CEREBROVASCULAR ACCIDENT PROPHYLAXIS
     Dosage: 5 MG, BID
     Route: 048
  3. DIGOXIN. [Concomitant]
     Active Substance: DIGOXIN
     Dosage: UNK
  4. ASPIRIN. [Suspect]
     Active Substance: ASPIRIN
     Dosage: 300 MG, UNK
     Route: 065
  5. CORSODYL [Concomitant]
     Active Substance: CHLORHEXIDINE GLUCONATE
     Dosage: UNK

REACTIONS (2)
  - Tongue discolouration [Unknown]
  - Ischaemic stroke [Fatal]

NARRATIVE: CASE EVENT DATE: 20150617
